FAERS Safety Report 7961506-1 (Version None)
Quarter: 2011Q4

REPORT INFORMATION
  Report Type: 
  Country: None (occurrence: None)
  Receive Date: 20111207
  Receipt Date: 20111201
  Transmission Date: 20120403
  Serious: Yes (Death)
  Sender: FDA-Public Use
  Company Number: US-CELGENEUS-163-21880-11120205

PATIENT
  Sex: Male

DRUGS (9)
  1. REVLIMID [Suspect]
     Indication: MYELODYSPLASTIC SYNDROME
     Dosage: 10 MILLIGRAM
     Route: 048
     Dates: start: 20111111, end: 20111101
  2. PREDNISONE TAB [Concomitant]
     Route: 065
  3. FOLIC ACID [Concomitant]
     Route: 065
  4. WARFARIN SODIUM [Concomitant]
     Route: 065
  5. VITAMIN B-12 [Concomitant]
     Route: 065
  6. INDOMETHACIN [Concomitant]
     Route: 065
  7. MENS MULTIVITAMINS [Concomitant]
     Route: 065
  8. DIAZEPAM [Concomitant]
     Route: 065
  9. COLCHICINE [Concomitant]
     Route: 065

REACTIONS (1)
  - DEATH [None]
